FAERS Safety Report 4406580-4 (Version None)
Quarter: 2004Q3

REPORT INFORMATION
  Report Type: 
  Country: None (occurrence: None)
  Receive Date: 20040723
  Receipt Date: 20040524
  Transmission Date: 20050211
  Serious: Yes (Hospitalization, Disabling, Other)
  Sender: FDA-Public Use
  Company Number: JP-GLAXOSMITHKLINE-B0333693A

PATIENT
  Age: 53 Year
  Sex: Male

DRUGS (11)
  1. EPIVIR [Suspect]
     Indication: HIV INFECTION
     Dosage: 300MG PER DAY
     Route: 048
     Dates: start: 20040419, end: 20040517
  2. TENOFOVIR DISOPROXIL FUMARATE [Suspect]
     Indication: HIV INFECTION
     Dosage: 300MG PER DAY
     Route: 048
     Dates: start: 20040419, end: 20040517
  3. EFAVIRENZ [Suspect]
     Indication: HIV INFECTION
     Dosage: 600MG PER DAY
     Route: 048
     Dates: start: 20040419, end: 20040517
  4. ANTIBIOTIC [Suspect]
     Indication: DISSEMINATED TUBERCULOSIS
     Dosage: 150MG THREE TIMES PER DAY
     Route: 048
     Dates: start: 20040430, end: 20040517
  5. ISONIAZID [Suspect]
     Indication: DISSEMINATED TUBERCULOSIS
     Dosage: 150MG THREE TIMES PER DAY
     Route: 048
     Dates: start: 20040430, end: 20040517
  6. ETHAMBUTOL HCL [Suspect]
     Indication: DISSEMINATED TUBERCULOSIS
     Dosage: 250MG THREE TIMES PER DAY
     Route: 048
     Dates: start: 20040101, end: 20040517
  7. PYRAZINAMIDE [Suspect]
     Indication: DISSEMINATED TUBERCULOSIS
     Dosage: .4MG THREE TIMES PER DAY
     Route: 048
     Dates: start: 20040430, end: 20040517
  8. LOXOPROFEN [Suspect]
     Indication: SCIATICA
     Dosage: 1TAB THREE TIMES PER DAY
     Route: 048
     Dates: start: 20040415, end: 20040517
  9. ALLOPURINOL [Suspect]
     Dosage: 100MG TWICE PER DAY
     Route: 048
     Dates: start: 20040511, end: 20040517
  10. GLYBURIDE [Suspect]
     Indication: DIABETES MELLITUS
     Dosage: 1.25MG PER DAY
     Route: 048
     Dates: start: 20040224, end: 20040517
  11. CO-TRIMOXAZOLE [Suspect]
     Indication: INFECTION PROPHYLAXIS
     Dosage: 1TAB PER DAY
     Route: 048
     Dates: start: 20040218, end: 20040517

REACTIONS (2)
  - DRUG ERUPTION [None]
  - RENAL FAILURE ACUTE [None]
